FAERS Safety Report 18297309 (Version 1)
Quarter: 2020Q3

REPORT INFORMATION
  Report Type: Spontaneous
  Country: FR (occurrence: FR)
  Receive Date: 20200923
  Receipt Date: 20200923
  Transmission Date: 20201103
  Serious: Yes (Hospitalization)
  Sender: FDA-Public Use
  Company Number: FR-AUROBINDO-AUR-APL-2020-048943

PATIENT
  Age: 75 Year
  Sex: Male
  Weight: 78.4 kg

DRUGS (4)
  1. VERCYTE [Suspect]
     Active Substance: PIPOBROMAN
     Indication: ESSENTIAL THROMBOCYTHAEMIA
     Dosage: 10 DOSAGE FORM, EVERY WEEK (5 DAYS A WEEK)
     Route: 048
     Dates: start: 20191125, end: 20191231
  2. KARDEGIC [Suspect]
     Active Substance: ASPIRIN DL-LYSINE
     Indication: CARDIOVASCULAR EVENT PROPHYLAXIS
     Dosage: 1 DOSAGE FORM, ONCE A DAY
     Route: 048
     Dates: start: 20140101, end: 20200121
  3. RAMIPRIL. [Suspect]
     Active Substance: RAMIPRIL
     Indication: HYPERTENSION
     Dosage: 2 MILLIGRAM, ONCE A DAY
     Route: 048
     Dates: start: 20140101, end: 20191231
  4. ALLOPURINOL. [Suspect]
     Active Substance: ALLOPURINOL
     Indication: PROPHYLAXIS
     Dosage: 100 MILLIGRAM, ONCE A DAY
     Route: 048
     Dates: start: 20140101, end: 20200122

REACTIONS (3)
  - Flatulence [Recovered/Resolved]
  - Diarrhoea [Recovered/Resolved]
  - Abdominal distension [Recovered/Resolved]

NARRATIVE: CASE EVENT DATE: 202001
